FAERS Safety Report 22146050 (Version 1)
Quarter: 2023Q1

REPORT INFORMATION
  Report Type: Spontaneous
  Country: US (occurrence: US)
  Receive Date: 20230328
  Receipt Date: 20230328
  Transmission Date: 20230418
  Serious: Yes (Other)
  Sender: FDA-Public Use
  Company Number: US-MYLANLABS-2023M1031966

PATIENT
  Sex: Male

DRUGS (4)
  1. WARFARIN [Suspect]
     Active Substance: WARFARIN
     Indication: Prophylaxis
     Dosage: UNK
     Route: 065
  2. WARFARIN [Suspect]
     Active Substance: WARFARIN
     Indication: Thrombosis prophylaxis
  3. THROMBATE III [Suspect]
     Active Substance: ANTITHROMBIN III HUMAN
     Indication: Thrombosis prophylaxis
     Dosage: UNK, QD (INFUSION)
     Route: 042
  4. THROMBATE III [Suspect]
     Active Substance: ANTITHROMBIN III HUMAN
     Dosage: UNK, BIWEEKLY, INFUSION
     Route: 042

REACTIONS (1)
  - Drug ineffective [Unknown]
